FAERS Safety Report 9510198 (Version 2)
Quarter: 2014Q3

REPORT INFORMATION
  Report Type: Spontaneous
  Country: US (occurrence: US)
  Receive Date: 20130909
  Receipt Date: 20140908
  Transmission Date: 20150326
  Serious: No
  Sender: FDA-Public Use
  Company Number: US-BRISTOL-MYERS SQUIBB COMPANY-18733220

PATIENT
  Age: 66 Year
  Sex: Male
  Weight: 117.91 kg

DRUGS (14)
  1. FOLIC ACID. [Concomitant]
     Active Substance: FOLIC ACID
  2. TOPROL XL [Concomitant]
     Active Substance: METOPROLOL SUCCINATE
  3. LIPITOR [Concomitant]
     Active Substance: ATORVASTATIN CALCIUM
  4. PROSCAR [Concomitant]
     Active Substance: FINASTERIDE
  5. RAPAFLO [Concomitant]
     Active Substance: SILODOSIN
  6. ABILIFY [Suspect]
     Active Substance: ARIPIPRAZOLE
     Dates: start: 20121206
  7. METHOTREXATE [Concomitant]
     Active Substance: METHOTREXATE
  8. ENBREL [Concomitant]
     Active Substance: ETANERCEPT
  9. ZOLOFT [Concomitant]
     Active Substance: SERTRALINE HYDROCHLORIDE
  10. LAMICTAL [Concomitant]
     Active Substance: LAMOTRIGINE
  11. LISINOPRIL. [Concomitant]
     Active Substance: LISINOPRIL
  12. SUBOXONE [Concomitant]
     Active Substance: BUPRENORPHINE HYDROCHLORIDE\NALOXONE HYDROCHLORIDE
  13. AMBIEN [Concomitant]
     Active Substance: ZOLPIDEM TARTRATE
  14. VITAMIN D [Concomitant]
     Active Substance: CHOLECALCIFEROL

REACTIONS (2)
  - Depressed mood [Unknown]
  - Weight increased [Unknown]
